FAERS Safety Report 9161625 (Version 2)
Quarter: 2013Q2

REPORT INFORMATION
  Report Type: Spontaneous
  Country: CO (occurrence: CO)
  Receive Date: 20130313
  Receipt Date: 20130403
  Transmission Date: 20140414
  Serious: Yes (Hospitalization)
  Sender: FDA-Public Use
  Company Number: CO-MERCK-1303COL005798

PATIENT
  Age: 73 Year
  Sex: Male

DRUGS (3)
  1. VICTRELIS [Suspect]
     Indication: HEPATITIS C
     Dosage: 2400 MG, QD
     Route: 048
     Dates: start: 20120809, end: 20130307
  2. REBETOL [Suspect]
     Indication: HEPATITIS C
     Dosage: 800 MG, QD
     Route: 048
     Dates: start: 20120809, end: 20130307
  3. PEG-INTRON [Suspect]
     Indication: HEPATITIS C
     Dosage: 100 MG, QW
     Route: 059
     Dates: start: 20120809, end: 20130307

REACTIONS (1)
  - Pneumonia [Recovered/Resolved]
